FAERS Safety Report 11558826 (Version 1)
Quarter: 2015Q3

REPORT INFORMATION
  Report Type: Spontaneous
  Country: AU (occurrence: AU)
  Receive Date: 20150928
  Receipt Date: 20150928
  Transmission Date: 20151125
  Serious: Yes (Hospitalization)
  Sender: FDA-Public Use
  Company Number: AU-TOLMAR, INC.-2015AU008525

PATIENT
  Sex: Male

DRUGS (1)
  1. ELIGARD [Suspect]
     Active Substance: LEUPROLIDE ACETATE
     Indication: PROSTATE CANCER
     Dosage: 45 MG, 6 MONTHLY
     Route: 065
     Dates: start: 20150317

REACTIONS (3)
  - Prostatomegaly [Unknown]
  - Urinary tract pain [Unknown]
  - Urinary retention [Unknown]

NARRATIVE: CASE EVENT DATE: 2015
